FAERS Safety Report 25800754 (Version 3)
Quarter: 2025Q4

REPORT INFORMATION
  Report Type: Spontaneous
  Country: US (occurrence: US)
  Receive Date: 20250915
  Receipt Date: 20251106
  Transmission Date: 20260118
  Serious: Yes (Life-Threatening, Hospitalization, Other)
  Sender: AUROBINDO
  Company Number: US-MLMSERVICE-20250828-PI627584-00108-1

PATIENT
  Age: 65 Year
  Sex: Female

DRUGS (3)
  1. CLOZAPINE [Suspect]
     Active Substance: CLOZAPINE
     Indication: Schizophrenia
     Dosage: 700 MILLIGRAM (200MG IN THE MORNING AND 500MG AT NIGHT)
     Route: 065
  2. ZIPRASIDONE [Concomitant]
     Active Substance: ZIPRASIDONE
     Indication: Psychotic symptom
     Dosage: 80 MILLIGRAM, TWO TIMES A DAY
     Route: 065
  3. OLANZAPINE [Concomitant]
     Active Substance: OLANZAPINE
     Indication: Psychotic symptom
     Dosage: 10 MILLIGRAM, AS NECESSARY
     Route: 065

REACTIONS (8)
  - Ileus paralytic [Recovering/Resolving]
  - Hypokalaemia [Unknown]
  - Hypotension [Unknown]
  - Gastrointestinal hypomotility [Recovering/Resolving]
  - Antipsychotic drug level above therapeutic [Unknown]
  - Constipation [Unknown]
  - Small intestinal obstruction [Unknown]
  - Gastrooesophageal reflux disease [Unknown]
